FAERS Safety Report 6326183-4 (Version None)
Quarter: 2009Q3

REPORT INFORMATION
  Report Type: 
  Country: None (occurrence: None)
  Receive Date: 20090824
  Receipt Date: 20090810
  Transmission Date: 20100115
  Serious: Yes (Other)
  Sender: FDA-Public Use
  Company Number: US-ROCHE-571706

PATIENT
  Sex: Female

DRUGS (4)
  1. PEGASYS [Suspect]
     Indication: HEPATITIS C
     Dosage: FORM REPORTED AS: PREFILLED SYRINGE
     Route: 058
     Dates: start: 20080610, end: 20090516
  2. RIBAPAK [Suspect]
     Indication: HEPATITIS C
     Dosage: DIVIDED DOSES
     Route: 048
     Dates: start: 20080610, end: 20090516
  3. RIBAPAK [Suspect]
     Dosage: DIVIDED DOSES
     Route: 048
  4. KLONOPIN [Suspect]
     Indication: DEPRESSION
     Route: 065

REACTIONS (26)
  - ALOPECIA [None]
  - AMNESIA [None]
  - ANXIETY [None]
  - CRYING [None]
  - DECREASED APPETITE [None]
  - DEPRESSED MOOD [None]
  - DEPRESSION [None]
  - DIZZINESS [None]
  - FALL [None]
  - FATIGUE [None]
  - HAEMATEMESIS [None]
  - HAND FRACTURE [None]
  - HEADACHE [None]
  - INJECTION SITE ERYTHEMA [None]
  - INJECTION SITE HAEMORRHAGE [None]
  - INSOMNIA [None]
  - LOSS OF CONSCIOUSNESS [None]
  - NAUSEA [None]
  - NECK PAIN [None]
  - PARAESTHESIA [None]
  - RASH [None]
  - RASH PUSTULAR [None]
  - RECTAL HAEMORRHAGE [None]
  - SKIN LESION [None]
  - SKIN MASS [None]
  - TENDON INJURY [None]
